FAERS Safety Report 7632022-1 (Version None)
Quarter: 2011Q3

REPORT INFORMATION
  Report Type: 
  Country: None (occurrence: None)
  Receive Date: 20110725
  Receipt Date: 20100610
  Transmission Date: 20111222
  Serious: Yes (Hospitalization, Other)
  Sender: FDA-Public Use
  Company Number: US-BRISTOL-MYERS SQUIBB COMPANY-15053267

PATIENT
  Age: 76 Year
  Sex: Female
  Weight: 71 kg

DRUGS (2)
  1. COUMADIN [Suspect]
     Indication: PULMONARY EMBOLISM
     Dosage: 10 MG CUTS IN HALF
  2. ZESTRIL [Concomitant]

REACTIONS (6)
  - CEREBRAL THROMBOSIS [None]
  - ORAL DISCOMFORT [None]
  - THROAT IRRITATION [None]
  - OESOPHAGEAL PAIN [None]
  - INTERNATIONAL NORMALISED RATIO DECREASED [None]
  - GLOSSODYNIA [None]
